FAERS Safety Report 5940176-8 (Version None)
Quarter: 2008Q4

REPORT INFORMATION
  Report Type: 
  Country: None (occurrence: None)
  Receive Date: 20081030
  Receipt Date: 20081017
  Transmission Date: 20090506
  Serious: Yes (Other)
  Sender: FDA-Public Use
  Company Number: 2008-183403-NL

PATIENT
  Age: 61 Year
  Sex: Male

DRUGS (6)
  1. REMERON [Suspect]
     Indication: DEPRESSION
     Dosage: 7.5 MG, DAILY, ORAL
     Route: 048
     Dates: start: 20050901
  2. REMERON [Suspect]
     Indication: SLEEP DISORDER
     Dosage: 7.5 MG, DAILY, ORAL
     Route: 048
     Dates: start: 20050901
  3. REMERON [Suspect]
     Indication: DEPRESSION
     Dosage: 7.5 MG, DAILY, ORAL
     Route: 048
     Dates: start: 20070901, end: 20071101
  4. REMERON [Suspect]
     Indication: SLEEP DISORDER
     Dosage: 7.5 MG, DAILY, ORAL
     Route: 048
     Dates: start: 20070901, end: 20071101
  5. REMERON [Suspect]
     Indication: DEPRESSION
     Dosage: 30 MG, DAILY; ORAL
     Route: 048
     Dates: start: 20071101
  6. REMERON [Suspect]
     Indication: SLEEP DISORDER
     Dosage: 30 MG, DAILY; ORAL
     Route: 048
     Dates: start: 20071101

REACTIONS (4)
  - DRUG RESISTANCE [None]
  - GAIT DISTURBANCE [None]
  - MOVEMENT DISORDER [None]
  - PARKINSONISM [None]
